FAERS Safety Report 4943331-9 (Version None)
Quarter: 2006Q1

REPORT INFORMATION
  Report Type: 
  Country: None (occurrence: None)
  Receive Date: 20060314
  Receipt Date: 20060216
  Transmission Date: 20060701
  Serious: Yes (Hospitalization)
  Sender: FDA-Public Use
  Company Number: JP-SANOFI-SYNTHELABO-A01200601265

PATIENT
  Age: 929 Month
  Sex: Female

DRUGS (7)
  1. MYSLEE [Suspect]
     Indication: INSOMNIA
     Dosage: 5 MG
     Route: 048
     Dates: start: 20060208, end: 20060215
  2. MYSLEE [Suspect]
     Route: 048
     Dates: start: 20060216, end: 20060216
  3. CARDENALIN [Concomitant]
     Indication: HYPERTENSION
     Dosage: 2 MG
     Route: 048
     Dates: start: 20060212
  4. LIPITOR [Concomitant]
     Indication: HYPERCHOLESTEROLAEMIA
     Dosage: 10 MG
     Route: 048
     Dates: start: 20060212
  5. FLAVITAN [Concomitant]
     Indication: DRUG USE FOR UNKNOWN INDICATION
     Dosage: 3 GTT
     Route: 031
  6. LOMEFLON [Concomitant]
     Indication: TYPE IIA HYPERLIPIDAEMIA
     Dosage: 3 GTT
     Route: 031
  7. INTAL [Concomitant]
     Indication: HYPERSENSITIVITY
     Dosage: 3 GTT
     Route: 031

REACTIONS (2)
  - AMNESIA [None]
  - DELIRIUM [None]
